FAERS Safety Report 20674851 (Version 1)
Quarter: 2022Q2

REPORT INFORMATION
  Report Type: Spontaneous
  Country: FR (occurrence: FR)
  Receive Date: 20220405
  Receipt Date: 20220405
  Transmission Date: 20220721
  Serious: Yes (Other)
  Sender: FDA-Public Use
  Company Number: None

PATIENT
  Age: 46 Year
  Sex: Male

DRUGS (4)
  1. AZITHROMYCIN [Suspect]
     Active Substance: AZITHROMYCIN
     Indication: COVID-19
     Dosage: 2 DF, 1X/DAY
     Route: 048
     Dates: start: 20220124, end: 20220128
  2. OXOMEMAZINE [Suspect]
     Active Substance: OXOMEMAZINE
     Indication: COVID-19
     Dosage: 1 DF, 1X/DAY
     Route: 048
     Dates: start: 20220124, end: 20220130
  3. BILASTINE [Concomitant]
     Active Substance: BILASTINE
     Dosage: UNK
  4. ACETAMINOPHEN [Concomitant]
     Active Substance: ACETAMINOPHEN
     Dosage: UNK

REACTIONS (3)
  - Rash [Recovering/Resolving]
  - Eosinophilia [Recovering/Resolving]
  - Off label use [Unknown]

NARRATIVE: CASE EVENT DATE: 20220124
